FAERS Safety Report 6390142-6 (Version None)
Quarter: 2009Q4

REPORT INFORMATION
  Report Type: 
  Country: None (occurrence: None)
  Receive Date: 20091003
  Receipt Date: 20090919
  Transmission Date: 20100525
  Serious: Yes (Death, Hospitalization)
  Sender: FDA-Public Use
  Company Number: 2009-03695

PATIENT
  Age: 6 Year
  Sex: Male
  Weight: 22.7 kg

DRUGS (19)
  1. VELCADE [Suspect]
     Indication: ACUTE MYELOID LEUKAEMIA
     Dosage: 1.3 MG/M2, IV BOLUS
     Route: 040
     Dates: start: 20090806, end: 20090814
  2. IDARUBICIN HCL [Suspect]
     Indication: ACUTE MYELOID LEUKAEMIA
     Dosage: 12 MG/M2, INTRAVENOUS
     Route: 042
     Dates: start: 20090806, end: 20090809
  3. CYTARABINE [Suspect]
     Indication: ACUTE MYELOID LEUKAEMIA
     Dosage: 70 MG/KG, INTRATHECAL; 100 MG/M2, INTRAVENOUS
     Dates: start: 20090806, end: 20090806
  4. CYTARABINE [Suspect]
     Indication: ACUTE MYELOID LEUKAEMIA
     Dosage: 70 MG/KG, INTRATHECAL; 100 MG/M2, INTRAVENOUS
     Dates: end: 20090813
  5. AMBISOME [Concomitant]
  6. CEFEPIME [Concomitant]
  7. DAPTOMYCIN [Concomitant]
  8. DIURIL (CHLOROTHIAZIDE) [Concomitant]
  9. DOBUTAMINE (DOBUTAMINE) [Concomitant]
  10. DOPAMINE HCL [Concomitant]
  11. FLAGYL [Concomitant]
  12. GENTAMICIN [Concomitant]
  13. POTASSIUM CHLORIDE [Concomitant]
  14. LASIX [Concomitant]
  15. MEROPENEM [Concomitant]
  16. MILRINONE LACTATE [Concomitant]
  17. RIFAMPIN [Concomitant]
  18. SYNTHROID [Concomitant]
  19. TIGECYCLINE [Concomitant]

REACTIONS (9)
  - CARDIOMYOPATHY [None]
  - COR PULMONALE [None]
  - ELECTROCARDIOGRAM QT PROLONGED [None]
  - ENTEROCOCCAL SEPSIS [None]
  - LEFT VENTRICULAR DYSFUNCTION [None]
  - MYOCARDITIS [None]
  - SEPSIS [None]
  - TACHYCARDIA [None]
  - VENTRICULAR DYSFUNCTION [None]
